FAERS Safety Report 6649179-1 (Version None)
Quarter: 2010Q1

REPORT INFORMATION
  Report Type: 
  Country: None (occurrence: None)
  Receive Date: 20100322
  Receipt Date: 20100312
  Transmission Date: 20100710
  Serious: Yes (Other)
  Sender: FDA-Public Use
  Company Number: 2010SP015677

PATIENT
  Sex: Female

DRUGS (1)
  1. REMERON [Suspect]
     Indication: DRUG USE FOR UNKNOWN INDICATION

REACTIONS (2)
  - CONDITION AGGRAVATED [None]
  - ENTEROCOLITIS HAEMORRHAGIC [None]
